FAERS Safety Report 9280541 (Version 2)
Quarter: 2013Q1

REPORT INFORMATION
  Report Type: Spontaneous
  Country: NL (occurrence: None)
  Receive Date: 20130305
  Receipt Date: 20130315
  Transmission Date: 20140127
  Serious: Yes (Hospitalization)
  Sender: FDA-Public Use
  Company Number: 220634

PATIENT
  Age: 63 Year
  Sex: Female

DRUGS (6)
  1. INNOHEP [Suspect]
     Indication: DEEP VEIN THROMBOSIS
     Dates: start: 20120225, end: 201206
  2. ACENOCOUMAROL [Suspect]
     Indication: DEEP VEIN THROMBOSIS
     Dates: start: 20120525, end: 20120614
  3. MIRTAZAPINE (MIRTAZAPINE) [Concomitant]
  4. SERTRALINE (SERTRALINE) [Concomitant]
  5. ATROVENT AEROSOL (IPRATROPIUM BROMIDE) [Concomitant]
  6. FLIXOTIDE AER (FLUTICASONE) [Concomitant]

REACTIONS (5)
  - Heparin-induced thrombocytopenia [None]
  - Aortic thrombosis [None]
  - Embolism arterial [None]
  - Extremity necrosis [None]
  - Incorrect drug administration duration [None]
